FAERS Safety Report 7655675-0 (Version None)
Quarter: 2011Q3

REPORT INFORMATION
  Report Type: 
  Country: None (occurrence: None)
  Receive Date: 20110804
  Receipt Date: 20110801
  Transmission Date: 20111222
  Serious: No
  Sender: FDA-Public Use
  Company Number: US-TEVA-294532USA

PATIENT
  Age: 27 Year
  Sex: Female
  Weight: 86.26 kg

DRUGS (4)
  1. VITAMIN TAB [Concomitant]
     Indication: SUPPLEMENTATION THERAPY
  2. PLAN B ONE-STEP [Suspect]
     Dosage: 1.5 MILLIGRAM;
     Route: 048
     Dates: start: 20110723, end: 20110723
  3. PLAN B ONE-STEP [Suspect]
     Indication: POST COITAL CONTRACEPTION
     Dosage: 1.5 MILLIGRAM;
     Route: 048
     Dates: start: 20110701, end: 20110701
  4. PROBIOTICS [Concomitant]
     Indication: SUPPLEMENTATION THERAPY

REACTIONS (4)
  - DIZZINESS [None]
  - MALAISE [None]
  - MENSTRUATION IRREGULAR [None]
  - NAUSEA [None]
